FAERS Safety Report 5302282-0 (Version None)
Quarter: 2007Q1

REPORT INFORMATION
  Report Type: 
  Country: None (occurrence: None)
  Receive Date: 20070201
  Receipt Date: 20061215
  Transmission Date: 20070707
  Serious: No
  Sender: FDA-Public Use
  Company Number: 2006PV027008

PATIENT
  Age: 49 Year
  Sex: Female
  Weight: 133.8111 kg

DRUGS (14)
  1. BYETTA [Suspect]
     Indication: DIABETES MELLITUS NON-INSULIN-DEPENDENT
     Dosage: SEE IMAGE
     Route: 058
     Dates: start: 20060901, end: 20061101
  2. BYETTA [Suspect]
     Indication: DIABETES MELLITUS NON-INSULIN-DEPENDENT
     Dosage: SEE IMAGE
     Route: 058
     Dates: start: 20061207
  3. LOVASTATIN [Suspect]
     Dosage: 40 MG;QD
     Dates: start: 20040101, end: 20061101
  4. AMARYL [Concomitant]
  5. LOVEXYL [Concomitant]
  6. DIOVAN [Concomitant]
  7. PRILOSEC [Concomitant]
  8. TRAMADOL HCL [Concomitant]
  9. TYLENOL [Concomitant]
  10. CENTRUM [Concomitant]
  11. MAGNESIUM SULFATE [Concomitant]
  12. VITAMIN B-12 [Concomitant]
  13. CALTRATE [Concomitant]
  14. VITAMIN D [Concomitant]

REACTIONS (3)
  - MUSCLE SPASMS [None]
  - NEURALGIA [None]
  - SLEEP APNOEA SYNDROME [None]
